FAERS Safety Report 7880663-9 (Version None)
Quarter: 2011Q4

REPORT INFORMATION
  Report Type: 
  Country: None (occurrence: None)
  Receive Date: 20111101
  Receipt Date: 20110727
  Transmission Date: 20120403
  Serious: No
  Sender: FDA-Public Use
  Company Number: US-BAYER-2011-066431

PATIENT

DRUGS (2)
  1. AVELOX [Suspect]
     Dosage: UNK
     Route: 048
  2. CLARITIN [Suspect]

REACTIONS (4)
  - DIZZINESS [None]
  - HYPERHIDROSIS [None]
  - ABNORMAL DREAMS [None]
  - PALPITATIONS [None]
